FAERS Safety Report 16363675 (Version 1)
Quarter: 2019Q2

REPORT INFORMATION
  Report Type: Spontaneous
  Country: NL (occurrence: NL)
  Receive Date: 20190528
  Receipt Date: 20190528
  Transmission Date: 20190711
  Serious: Yes (Other)
  Sender: FDA-Public Use
  Company Number: PHHY2019NL121247

PATIENT
  Sex: Female
  Weight: 65 kg

DRUGS (1)
  1. TOBRADEX [Suspect]
     Active Substance: DEXAMETHASONE\TOBRAMYCIN
     Indication: PROPHYLAXIS AGAINST TRANSPLANT REJECTION
     Dosage: 1X PER DAG
     Route: 065
     Dates: start: 20170817, end: 20190509

REACTIONS (1)
  - Cataract [Recovered/Resolved with Sequelae]
